FAERS Safety Report 8847034 (Version 1)
Quarter: 2012Q4

REPORT INFORMATION
  Report Type: Spontaneous
  Country: IN (occurrence: None)
  Receive Date: 20121016
  Receipt Date: 20121016
  Transmission Date: 20130627
  Serious: Yes (Other)
  Sender: FDA-Public Use
  Company Number: FK201203000

PATIENT
  Age: 42 Year
  Sex: Female

DRUGS (2)
  1. NEOSTIGMINE (MANUFACTURER UNKNOWN) (NEOSTIGMINE, METHYLSULFATE) [Suspect]
     Indication: ANAESTHESIA
     Route: 042
  2. ATROPINE [Suspect]
     Indication: ANAESTHESIA
     Route: 042

REACTIONS (3)
  - Facial spasm [None]
  - Blood pressure increased [None]
  - Heart rate increased [None]
